FAERS Safety Report 7878389-0 (Version None)
Quarter: 2011Q4

REPORT INFORMATION
  Report Type: 
  Country: None (occurrence: None)
  Receive Date: 20111003
  Receipt Date: 20110412
  Transmission Date: 20120403
  Serious: Yes (Hospitalization, Disabling, Other)
  Sender: FDA-Public Use
  Company Number: 276620USA

PATIENT
  Sex: Female

DRUGS (1)
  1. APRI (DESOGESTREL W/ETHINYLESTRADIOL) [Suspect]
     Indication: CONTRACEPTION
     Dosage: ORAL
     Route: 048
     Dates: start: 20080101

REACTIONS (15)
  - COGNITIVE DISORDER [None]
  - APHASIA [None]
  - DIZZINESS [None]
  - HYPOAESTHESIA [None]
  - FALL [None]
  - HYPERHIDROSIS [None]
  - PARAESTHESIA [None]
  - HEADACHE [None]
  - ASTHENIA [None]
  - VIITH NERVE PARALYSIS [None]
  - PRESYNCOPE [None]
  - VISUAL IMPAIRMENT [None]
  - ISCHAEMIC STROKE [None]
  - SENSORY LOSS [None]
  - MUSCULOSKELETAL DISORDER [None]
